FAERS Safety Report 9857383 (Version 1)
Quarter: 2014Q1

REPORT INFORMATION
  Report Type: Report from Study
  Country: DE (occurrence: DE)
  Receive Date: 20140131
  Receipt Date: 20140131
  Transmission Date: 20141002
  Serious: Yes (Hospitalization)
  Sender: FDA-Public Use
  Company Number: DE-ROCHE-1340699

PATIENT
  Age: 33 Year
  Sex: Female

DRUGS (5)
  1. RITUXIMAB [Suspect]
     Indication: RHEUMATOID ARTHRITIS
     Route: 065
     Dates: start: 20110325
  2. RITUXIMAB [Suspect]
     Route: 065
     Dates: start: 20120412
  3. RITUXIMAB [Suspect]
     Route: 065
     Dates: start: 20121122
  4. RITUXIMAB [Suspect]
     Route: 065
     Dates: start: 20130517
  5. PREDNISOLON [Concomitant]
     Indication: RHEUMATOID ARTHRITIS
     Route: 065

REACTIONS (1)
  - Basal cell carcinoma [Recovered/Resolved]
